FAERS Safety Report 6028881-9 (Version None)
Quarter: 2008Q4

REPORT INFORMATION
  Report Type: 
  Country: None (occurrence: None)
  Receive Date: 20081231
  Receipt Date: 20081216
  Transmission Date: 20090506
  Serious: Yes (Death)
  Sender: FDA-Public Use
  Company Number: B0552146A

PATIENT
  Age: 51 Year
  Sex: Male

DRUGS (8)
  1. LAMIVUDINE [Suspect]
     Indication: HIV INFECTION
     Dates: start: 20050215
  2. STAVUDINE [Suspect]
     Indication: HIV INFECTION
     Dates: start: 20050215
  3. ATAZANAVIR SULFATE [Suspect]
     Indication: HIV INFECTION
     Dates: start: 20050215
  4. RITONAVIR [Suspect]
     Indication: HIV INFECTION
     Dates: start: 20050215
  5. AZITHROMYCIN [Concomitant]
  6. ETHAMBUTOL [Concomitant]
  7. ISONIAZID [Concomitant]
  8. LEVOFLOXACIN [Concomitant]

REACTIONS (17)
  - CD4 LYMPHOCYTES DECREASED [None]
  - CENTRAL NERVOUS SYSTEM LESION [None]
  - CENTRAL NERVOUS SYSTEM LYMPHOMA [None]
  - CNS VENTRICULITIS [None]
  - ENCEPHALITIS [None]
  - EPSTEIN-BARR VIRUS INFECTION [None]
  - GENERAL PHYSICAL HEALTH DETERIORATION [None]
  - GRANULOMA [None]
  - IMMUNE RECONSTITUTION SYNDROME [None]
  - INFLAMMATION [None]
  - LETHARGY [None]
  - LUNG INFILTRATION [None]
  - LUNG NEOPLASM [None]
  - NEUROLOGICAL SYMPTOM [None]
  - PULMONARY GRANULOMA [None]
  - PYREXIA [None]
  - RENAL FAILURE [None]
